FAERS Safety Report 10755509 (Version 2)
Quarter: 2015Q1

REPORT INFORMATION
  Report Type: Spontaneous
  Country: NL (occurrence: NL)
  Receive Date: 20150202
  Receipt Date: 20150205
  Transmission Date: 20150721
  Serious: Yes (Life-Threatening, Hospitalization, Disabling, Other)
  Sender: FDA-Public Use
  Company Number: NL-ABBVIE-15P-114-1340749-00

PATIENT
  Age: 45 Year
  Sex: Male
  Weight: 80 kg

DRUGS (2)
  1. HUMIRA [Suspect]
     Active Substance: ADALIMUMAB
     Indication: ANKYLOSING SPONDYLITIS
     Route: 058
     Dates: start: 20060505, end: 2012
  2. AMIODARON [Suspect]
     Active Substance: AMIODARONE
     Indication: CARDIOMYOPATHY
     Route: 048
     Dates: start: 2006, end: 2011

REACTIONS (7)
  - Cardiomyopathy [Unknown]
  - Pericarditis [Unknown]
  - Cardiac disorder [Not Recovered/Not Resolved]
  - Arrhythmia [Unknown]
  - Cardiac failure [Unknown]
  - Hyperthyroidism [Unknown]
  - Impaired work ability [Not Recovered/Not Resolved]

NARRATIVE: CASE EVENT DATE: 20060505
